FAERS Safety Report 19653773 (Version 3)
Quarter: 2021Q3

REPORT INFORMATION
  Report Type: Spontaneous
  Country: JP (occurrence: JP)
  Receive Date: 20210803
  Receipt Date: 20210928
  Transmission Date: 20211014
  Serious: Yes (Other)
  Sender: FDA-Public Use
  Company Number: JP-PFIZER INC-2021267201

PATIENT
  Sex: Male

DRUGS (8)
  1. MEKTOVI [Suspect]
     Active Substance: BINIMETINIB
     Dosage: UNK
     Route: 048
  2. ERBITUX [Suspect]
     Active Substance: CETUXIMAB
     Dosage: UNK
     Route: 041
  3. BRAFTOVI [Suspect]
     Active Substance: ENCORAFENIB
     Indication: COLON CANCER
     Dosage: 300 MG, EVERYDAY
     Route: 048
     Dates: start: 202008
  4. MEKTOVI [Suspect]
     Active Substance: BINIMETINIB
     Indication: COLON CANCER
     Dosage: 45 MG, Q12H
     Route: 048
     Dates: start: 202008
  5. MEKTOVI [Suspect]
     Active Substance: BINIMETINIB
     Dosage: 45 MG, Q12H
     Route: 048
  6. BRAFTOVI [Suspect]
     Active Substance: ENCORAFENIB
     Dosage: UNK
     Route: 048
  7. BRAFTOVI [Suspect]
     Active Substance: ENCORAFENIB
     Dosage: 300 MG, EVERYDAY
     Route: 048
  8. ERBITUX [Suspect]
     Active Substance: CETUXIMAB
     Indication: COLON CANCER
     Dosage: 250 MG/M2, QW
     Route: 041
     Dates: start: 202008

REACTIONS (13)
  - Mental impairment [Not Recovered/Not Resolved]
  - Product dose omission issue [Unknown]
  - Skin fissures [Recovering/Resolving]
  - Listless [Not Recovered/Not Resolved]
  - Schizophrenia [Not Recovered/Not Resolved]
  - Pulmonary pain [Recovering/Resolving]
  - Protein total decreased [Recovering/Resolving]
  - Malaise [Recovering/Resolving]
  - Pain [Recovering/Resolving]
  - Eczema [Recovering/Resolving]
  - Onychoclasis [Not Recovered/Not Resolved]
  - Rash [Recovering/Resolving]
  - Dermatitis infected [Recovering/Resolving]

NARRATIVE: CASE EVENT DATE: 20210428
